FAERS Safety Report 8796348 (Version 1)
Quarter: 2012Q4

REPORT INFORMATION
  Report Type: 
  Country: US (occurrence: US)
  Receive Date: 20120919
  Receipt Date: 20120919
  Transmission Date: 20130627
  Serious: No
  Sender: FDA-Public Use
  Company Number: US-ASTRAZENECA-2012SE71201

PATIENT
  Age: 59 Year
  Sex: Female
  Weight: 56.7 kg

DRUGS (11)
  1. NEXIUM EERD [Suspect]
     Indication: GASTROOESOPHAGEAL REFLUX DISEASE
     Route: 048
     Dates: start: 201209, end: 201209
  2. NEXIUM EERD [Suspect]
     Indication: GASTROOESOPHAGEAL REFLUX DISEASE
     Dosage: PRN
     Route: 048
  3. PRILOSEC [Suspect]
     Indication: GASTROOESOPHAGEAL REFLUX DISEASE
     Route: 048
     Dates: start: 2011, end: 2011
  4. PRILOSEC [Suspect]
     Indication: GASTROOESOPHAGEAL REFLUX DISEASE
     Route: 048
  5. PRILOSEC OTC [Suspect]
     Indication: GASTROOESOPHAGEAL REFLUX DISEASE
     Route: 048
     Dates: start: 2009, end: 2009
  6. CLOPRIOGEL [Concomitant]
     Indication: CORONARY ARTERY DISEASE
  7. METOPROLOL SUCCINATE [Concomitant]
     Indication: HYPERTENSION
  8. AMLODIPINE BESYLATE [Concomitant]
     Indication: HYPERTENSION
  9. LISINOPRIL HCTZ [Concomitant]
     Indication: HYPERTENSION
  10. SIMVASTATIN [Concomitant]
     Indication: BLOOD CHOLESTEROL
  11. LORATADINE [Concomitant]
     Indication: HYPERSENSITIVITY

REACTIONS (6)
  - Pain [Unknown]
  - Abdominal discomfort [Unknown]
  - Flatulence [Unknown]
  - Intentional drug misuse [Unknown]
  - Drug ineffective [Unknown]
  - Off label use [Unknown]
